FAERS Safety Report 4643918-7 (Version None)
Quarter: 2005Q2

REPORT INFORMATION
  Report Type: 
  Country: None (occurrence: None)
  Receive Date: 20050418
  Receipt Date: 20050405
  Transmission Date: 20051028
  Serious: Yes (Death, Hospitalization)
  Sender: FDA-Public Use
  Company Number: DEWYE514518MAR05

PATIENT
  Age: 51 Year
  Sex: Male

DRUGS (6)
  1. REFACTO [Suspect]
     Indication: FACTOR VIII DEFICIENCY
     Dosage: 2000 IU 3 TIMES PER WEEK, INTRAVENOUS
     Route: 042
     Dates: start: 20040927, end: 20040927
  2. REFACTO [Suspect]
     Indication: FACTOR VIII DEFICIENCY
     Dosage: 2000 IU 3 TIMES PER WEEK, INTRAVENOUS
     Route: 042
     Dates: start: 20031030, end: 20041023
  3. REFACTO [Suspect]
     Indication: FACTOR VIII DEFICIENCY
     Dosage: 2000 IU 3 TIMES PER WEEK, INTRAVENOUS
     Route: 042
     Dates: start: 20041008
  4. ACETAMINOPHEN [Concomitant]
  5. . [Concomitant]
  6. . [Concomitant]

REACTIONS (3)
  - ANTI-HBC ANTIBODY POSITIVE [None]
  - CEREBRAL HAEMORRHAGE [None]
  - HEPATITIS C ANTIBODY POSITIVE [None]
